FAERS Safety Report 9108478 (Version 1)
Quarter: 2013Q1

REPORT INFORMATION
  Report Type: Spontaneous
  Country: ZA (occurrence: ZA)
  Receive Date: 20130222
  Receipt Date: 20130222
  Transmission Date: 20140127
  Serious: Yes (Hospitalization)
  Sender: FDA-Public Use
  Company Number: ZA-B.I. PHARMACEUTICALS,INC./RIDGEFIELD-2013-AP-00129ZA

PATIENT
  Age: 49 Year
  Sex: Female
  Weight: 110 kg

DRUGS (1)
  1. PRADAXA [Suspect]
     Indication: JOINT SURGERY
     Dates: start: 20100712, end: 20100715

REACTIONS (1)
  - Pulmonary embolism [Recovered/Resolved]
